FAERS Safety Report 17668390 (Version 2)
Quarter: 2020Q3

REPORT INFORMATION
  Report Type: Spontaneous
  Country: US (occurrence: US)
  Receive Date: 20200415
  Receipt Date: 20200924
  Transmission Date: 20201102
  Serious: Yes (Other)
  Sender: FDA-Public Use
  Company Number: US-ASTRAZENECA-2019SE10432

PATIENT
  Age: 22575 Day
  Sex: Female
  Weight: 126.6 kg

DRUGS (41)
  1. NEXIUM [Suspect]
     Active Substance: ESOMEPRAZOLE MAGNESIUM
     Route: 048
     Dates: start: 2010
  2. LORATADINE. [Concomitant]
     Active Substance: LORATADINE
  3. PRILOSEC [Suspect]
     Active Substance: OMEPRAZOLE MAGNESIUM
     Route: 048
     Dates: start: 2010
  4. PRILOSEC OTC [Suspect]
     Active Substance: OMEPRAZOLE MAGNESIUM
     Indication: GASTROOESOPHAGEAL REFLUX DISEASE
     Route: 048
     Dates: start: 201001, end: 201712
  5. ALLOPURINOL. [Concomitant]
     Active Substance: ALLOPURINOL
     Indication: GOUT
     Dates: start: 2015
  6. DOXYCYCLINE. [Concomitant]
     Active Substance: DOXYCYCLINE
  7. ZEMPLAR [Concomitant]
     Active Substance: PARICALCITOL
  8. HEPARIN SODIUM. [Concomitant]
     Active Substance: HEPARIN SODIUM
  9. LEVOTHYROXINE. [Concomitant]
     Active Substance: LEVOTHYROXINE
     Indication: HYPOTHYROIDISM
     Dates: start: 2000
  10. FLUOXETINE [Concomitant]
     Active Substance: FLUOXETINE HYDROCHLORIDE
  11. CYCLOBENZAPRINE. [Concomitant]
     Active Substance: CYCLOBENZAPRINE
  12. METOPROLOL. [Concomitant]
     Active Substance: METOPROLOL
     Indication: HYPERTENSION
     Dates: start: 2015
  13. HYDRALAZINE [Concomitant]
     Active Substance: HYDRALAZINE HYDROCHLORIDE
  14. CELEBREX [Concomitant]
     Active Substance: CELECOXIB
  15. FAMOTIDINE. [Concomitant]
     Active Substance: FAMOTIDINE
  16. CENTRUM [Concomitant]
     Active Substance: VITAMINS
     Indication: GENERAL PHYSICAL HEALTH DETERIORATION
     Dates: start: 2015
  17. LISINOPRIL. [Concomitant]
     Active Substance: LISINOPRIL
     Indication: HYPERTENSION
     Dates: start: 2015
  18. TRAMADOL. [Concomitant]
     Active Substance: TRAMADOL
  19. PREDNISONE. [Concomitant]
     Active Substance: PREDNISONE
  20. ASPIRIN. [Concomitant]
     Active Substance: ASPIRIN
  21. PRAVASTATIN. [Concomitant]
     Active Substance: PRAVASTATIN
  22. GABAPENTIN. [Concomitant]
     Active Substance: GABAPENTIN
  23. NEXIUM 24HR [Suspect]
     Active Substance: ESOMEPRAZOLE MAGNESIUM
     Indication: GASTROOESOPHAGEAL REFLUX DISEASE
     Route: 048
     Dates: start: 2010
  24. BENZONATATE. [Concomitant]
     Active Substance: BENZONATATE
  25. IRON [Concomitant]
     Active Substance: IRON
  26. MEPERIDINE [Concomitant]
     Active Substance: MEPERIDINE
  27. TYLENOL [Concomitant]
     Active Substance: ACETAMINOPHEN
     Indication: PAIN
     Dates: start: 2015
  28. CITALOPRAM [Concomitant]
     Active Substance: CITALOPRAM HYDROBROMIDE
  29. EUTHYROX [Concomitant]
     Active Substance: LEVOTHYROXINE SODIUM
  30. MECLIZINE [Concomitant]
     Active Substance: MECLIZINE HYDROCHLORIDE
  31. MUPIROCIN. [Concomitant]
     Active Substance: MUPIROCIN
  32. GLYCOPYRROLATE. [Concomitant]
     Active Substance: GLYCOPYRROLATE
  33. ZOLPIDEM [Concomitant]
     Active Substance: ZOLPIDEM TARTRATE
  34. FERROUS SULFATE. [Concomitant]
     Active Substance: FERROUS SULFATE
     Indication: IRON DEFICIENCY
     Dates: start: 2015
  35. NITROFURANTOIN. [Concomitant]
     Active Substance: NITROFURANTOIN
  36. NEXIUM 24HR [Suspect]
     Active Substance: ESOMEPRAZOLE MAGNESIUM
     Indication: GASTROOESOPHAGEAL REFLUX DISEASE
     Route: 048
     Dates: start: 201001, end: 201712
  37. FUROSEMIDE. [Concomitant]
     Active Substance: FUROSEMIDE
  38. TIZANIDINE. [Concomitant]
     Active Substance: TIZANIDINE
     Indication: MUSCLE RELAXANT THERAPY
     Dates: start: 2013
  39. AMBIEN [Concomitant]
     Active Substance: ZOLPIDEM TARTRATE
     Indication: SLEEP DISORDER
     Dates: start: 2015
  40. HISTEX [Concomitant]
     Active Substance: CHLORPHENIRAMINE MALEATE\PSEUDOEPHEDRINE HYDROCHLORIDE
  41. SULFASALAZINE. [Concomitant]
     Active Substance: SULFASALAZINE

REACTIONS (2)
  - Renal failure [Unknown]
  - Chronic kidney disease [Not Recovered/Not Resolved]

NARRATIVE: CASE EVENT DATE: 20170523
